FAERS Safety Report 8942134 (Version 1)
Quarter: 2012Q4

REPORT INFORMATION
  Report Type: Report from Study
  Country: HK (occurrence: HK)
  Receive Date: 20121130
  Receipt Date: 20121130
  Transmission Date: 20130627
  Serious: Yes (Other)
  Sender: FDA-Public Use
  Company Number: HK-GLAXOSMITHKLINE-B0848426A

PATIENT

DRUGS (2)
  1. ADEFOVIR DIPIVOXIL [Suspect]
     Indication: CHRONIC HEPATITIS B
  2. LAMIVUDINE-HBV [Suspect]
     Indication: CHRONIC HEPATITIS B

REACTIONS (1)
  - Viral load increased [Unknown]
